FAERS Safety Report 21334347 (Version 1)
Quarter: 2022Q3

REPORT INFORMATION
  Report Type: Spontaneous
  Country: ES (occurrence: ES)
  Receive Date: 20220914
  Receipt Date: 20220914
  Transmission Date: 20221027
  Serious: Yes (Hospitalization)
  Sender: FDA-Public Use
  Company Number: ES-MYLANLABS-2022M1093126

PATIENT
  Age: 5 Year
  Sex: Male

DRUGS (4)
  1. AZITHROMYCIN [Suspect]
     Active Substance: AZITHROMYCIN
     Indication: Cat scratch disease
     Dosage: 10 MILLIGRAM/KILOGRAM, QD
     Route: 048
  2. AZITHROMYCIN [Suspect]
     Active Substance: AZITHROMYCIN
     Dosage: 5 MILLIGRAM/KILOGRAM, QD
     Route: 048
  3. RIFAMPIN [Suspect]
     Active Substance: RIFAMPIN
     Indication: Cat scratch disease
     Dosage: 20 MILLIGRAM/KILOGRAM, QD
     Route: 048
  4. GENTAMICIN [Suspect]
     Active Substance: GENTAMICIN
     Indication: Cat scratch disease
     Dosage: 3 MILLIGRAM/KILOGRAM, QD, PARENTERAL ROUTE
     Route: 065

REACTIONS (2)
  - Drug ineffective [Unknown]
  - Pyrexia [Recovered/Resolved]
